FAERS Safety Report 7790765-3 (Version None)
Quarter: 2011Q3

REPORT INFORMATION
  Report Type: 
  Country: None (occurrence: None)
  Receive Date: 20110930
  Receipt Date: 20110912
  Transmission Date: 20111222
  Serious: Yes (Death, Other)
  Sender: FDA-Public Use
  Company Number: PHHY2011GB85182

PATIENT
  Age: 59 Year
  Sex: Female

DRUGS (4)
  1. ANAKINRA [Concomitant]
     Route: 058
  2. CYCLOSPORINE [Suspect]
     Indication: LYMPHOHISTIOCYTOSIS
     Dosage: 200 ?G/L, UNK
  3. DEXAMETHASONE [Concomitant]
     Dosage: 10 MG/M2,
     Route: 048
  4. CYCLOSPORINE [Suspect]
     Indication: HISTIOCYTOSIS HAEMATOPHAGIC

REACTIONS (11)
  - PNEUMONIA [None]
  - FAECAL INCONTINENCE [None]
  - DEATH [None]
  - NEUROPATHY PERIPHERAL [None]
  - PARAESTHESIA [None]
  - PLEURAL EFFUSION [None]
  - PYREXIA [None]
  - URINARY INCONTINENCE [None]
  - ATAXIA [None]
  - PSEUDOMONAL SEPSIS [None]
  - RESPIRATORY DISTRESS [None]
